FAERS Safety Report 20379636 (Version 1)
Quarter: 2022Q1

REPORT INFORMATION
  Report Type: Spontaneous
  Country: US (occurrence: None)
  Receive Date: 20220126
  Receipt Date: 20220126
  Transmission Date: 20220424
  Serious: Yes (Hospitalization, Other)
  Sender: FDA-Public Use
  Company Number: None

PATIENT
  Age: 59 Year
  Sex: Female
  Weight: 118.5 kg

DRUGS (11)
  1. TOCILIZUMAB [Suspect]
     Active Substance: TOCILIZUMAB
     Indication: COVID-19
     Dosage: FREQUENCY : DAILY;?
     Route: 042
     Dates: start: 20211231, end: 20211231
  2. ASPIRIN [Concomitant]
     Active Substance: ASPIRIN
     Dates: start: 20211230, end: 20220103
  3. ATORVASTATIN [Concomitant]
     Active Substance: ATORVASTATIN
     Dates: start: 20211230
  4. DEXAMETHASONE [Concomitant]
     Active Substance: DEXAMETHASONE
     Dates: start: 20211230, end: 20220107
  5. Enoxaparin 40 mg subq q24h [Concomitant]
     Dates: start: 20211230, end: 20220113
  6. INSULIN LISPRO [Concomitant]
     Active Substance: INSULIN LISPRO
     Dates: start: 20211231
  7. INSULIN GLARGINE [Concomitant]
     Active Substance: INSULIN GLARGINE
     Dates: start: 20211231, end: 20220125
  8. QUETIAPINE [Concomitant]
     Active Substance: QUETIAPINE
     Dates: start: 20220102, end: 20220121
  9. REMDESIVIR [Concomitant]
     Active Substance: REMDESIVIR
     Dates: start: 20211231, end: 20220103
  10. Fentanyl drip [Concomitant]
  11. Norepinephrine drip [Concomitant]

REACTIONS (7)
  - Pleural effusion [None]
  - Acute kidney injury [None]
  - Dialysis [None]
  - Candida test positive [None]
  - Culture positive [None]
  - Staphylococcus test positive [None]
  - Streptococcus test positive [None]

NARRATIVE: CASE EVENT DATE: 20220108
